FAERS Safety Report 16755525 (Version 2)
Quarter: 2019Q4

REPORT INFORMATION
  Report Type: Spontaneous
  Country: BR (occurrence: BR)
  Receive Date: 20190829
  Receipt Date: 20191016
  Transmission Date: 20200122
  Serious: Yes (Other)
  Sender: FDA-Public Use
  Company Number: PHHY2019BR199835

PATIENT
  Sex: Female

DRUGS (2)
  1. DIOVAN HCT [Suspect]
     Active Substance: HYDROCHLOROTHIAZIDE\VALSARTAN
     Indication: HYPERTENSION
     Dosage: UNK
     Route: 065
  2. NOVALGINA [Concomitant]
     Active Substance: METAMIZOLE SODIUM
     Indication: PRODUCT USED FOR UNKNOWN INDICATION
     Dosage: UNK
     Route: 065

REACTIONS (6)
  - Mouth haemorrhage [Unknown]
  - Eye pain [Unknown]
  - Drug ineffective [Unknown]
  - Hypertensive crisis [Unknown]
  - Blood pressure increased [Unknown]
  - Headache [Unknown]
